FAERS Safety Report 14221611 (Version 8)
Quarter: 2019Q3

REPORT INFORMATION
  Report Type: Report from Study
  Country: US (occurrence: US)
  Receive Date: 20171124
  Receipt Date: 20190827
  Transmission Date: 20191004
  Serious: Yes (Death, Hospitalization, Other)
  Sender: FDA-Public Use
  Company Number: US-ACTELION-A-NJ2017-162913

PATIENT
  Age: 78 Year
  Sex: Female
  Weight: 61.22 kg

DRUGS (10)
  1. ADCIRCA [Suspect]
     Active Substance: TADALAFIL
     Indication: PRODUCT USED FOR UNKNOWN INDICATION
     Dosage: 20 MG, BID
     Route: 065
     Dates: start: 2010
  2. NORVASC [Concomitant]
     Active Substance: AMLODIPINE BESYLATE
     Dosage: 10 MG, QD
     Dates: start: 2010
  3. AMLODIPINE [Concomitant]
     Active Substance: AMLODIPINE BESYLATE
  4. QUINAPRIL. [Concomitant]
     Active Substance: QUINAPRIL
     Dosage: 20 MG, QD
     Dates: start: 2006
  5. TRACLEER [Suspect]
     Active Substance: BOSENTAN
     Indication: PULMONARY ARTERIAL HYPERTENSION
     Dosage: 125 MG, BID
     Route: 048
  6. OFEV [Concomitant]
     Active Substance: NINTEDANIB
  7. TORSEMIDE. [Concomitant]
     Active Substance: TORSEMIDE
     Dosage: 100 MG, AM + 50 MG IN PM
     Dates: start: 2010
  8. TORSEMIDE. [Concomitant]
     Active Substance: TORSEMIDE
     Dosage: 50 MG, QPM
  9. DIGOXIN. [Concomitant]
     Active Substance: DIGOXIN
     Dosage: 0.125 MG, QD
     Dates: start: 1996
  10. COUMADIN [Concomitant]
     Active Substance: WARFARIN SODIUM
     Dosage: TAKE AS DIRECTED
     Dates: start: 1998

REACTIONS (43)
  - Urinary tract infection [Unknown]
  - Dementia [Recovering/Resolving]
  - Haematocrit decreased [Recovering/Resolving]
  - Middle ear effusion [Recovering/Resolving]
  - Dizziness [Recovering/Resolving]
  - Asthenia [Recovering/Resolving]
  - Balance disorder [Unknown]
  - Hypotension [Recovering/Resolving]
  - Chronic kidney disease [Unknown]
  - Brain oedema [Recovering/Resolving]
  - Hepatic steatosis [Not Recovered/Not Resolved]
  - Nausea [Unknown]
  - Heart valve incompetence [Unknown]
  - Hypoacusis [Recovering/Resolving]
  - Red blood cell count decreased [Recovering/Resolving]
  - Headache [Recovering/Resolving]
  - Vertigo [Recovering/Resolving]
  - Ear infection [Unknown]
  - Haemoglobin decreased [Recovering/Resolving]
  - Sarcoma [Not Recovered/Not Resolved]
  - Oedema peripheral [Unknown]
  - Mood swings [Recovering/Resolving]
  - Malaise [Unknown]
  - Meniere^s disease [Recovering/Resolving]
  - Urine odour abnormal [Recovering/Resolving]
  - Anaemia [Recovering/Resolving]
  - Peripheral swelling [Unknown]
  - Chills [Unknown]
  - Blister [Unknown]
  - Dizziness postural [Unknown]
  - Death [Fatal]
  - Weight decreased [Unknown]
  - Fatigue [Unknown]
  - Dyspnoea [Unknown]
  - Heart rate decreased [Recovered/Resolved]
  - Abdominal pain [Unknown]
  - Memory impairment [Unknown]
  - Ear disorder [Unknown]
  - Feeling cold [Unknown]
  - Pain in extremity [Unknown]
  - Contusion [Unknown]
  - Fluid retention [Unknown]
  - Pulmonary congestion [Unknown]

NARRATIVE: CASE EVENT DATE: 20140922
